FAERS Safety Report 21300884 (Version 1)
Quarter: 2022Q3

REPORT INFORMATION
  Report Type: Report from Study
  Country: US (occurrence: US)
  Receive Date: 20220907
  Receipt Date: 20220907
  Transmission Date: 20221026
  Serious: Yes (Other)
  Sender: FDA-Public Use
  Company Number: US-GILEAD-2022-0596186

PATIENT
  Age: 28 Year
  Sex: Male

DRUGS (2)
  1. AZTREONAM LYSINE [Suspect]
     Active Substance: AZTREONAM LYSINE
     Indication: Cystic fibrosis
     Dosage: 75 MG, TID, CYCLING 28 DAYS ON AND 28 DAYS OFF
     Route: 055
     Dates: start: 2012
  2. TRIKAFTA [Concomitant]
     Active Substance: ELEXACAFTOR\IVACAFTOR\TEZACAFTOR
     Dosage: 100/50/75 MG AND 150 MG TAB

REACTIONS (6)
  - Pulmonary function test decreased [Unknown]
  - Haemoptysis [Unknown]
  - Pneumonia [Unknown]
  - Feeling abnormal [Unknown]
  - Pyrexia [Unknown]
  - Cough [Unknown]

NARRATIVE: CASE EVENT DATE: 20220801
